FAERS Safety Report 17147509 (Version 2)
Quarter: 2019Q4

REPORT INFORMATION
  Report Type: Spontaneous
  Country: DE (occurrence: DE)
  Receive Date: 20191212
  Receipt Date: 20191230
  Transmission Date: 20200122
  Serious: Yes (Hospitalization)
  Sender: FDA-Public Use
  Company Number: DE-MYLANLABS-2019M1122243

PATIENT
  Sex: Female
  Weight: 92 kg

DRUGS (12)
  1. CANDESARTAN. [Suspect]
     Active Substance: CANDESARTAN
     Indication: PRODUCT USED FOR UNKNOWN INDICATION
     Dosage: 4 MILLIGRAM, QD (4 MILLIGRAM DAILY; 1-0-0)
     Route: 048
     Dates: start: 20190803
  2. FAMPYRA [Concomitant]
     Active Substance: DALFAMPRIDINE
     Dosage: 20 MILLIGRAM, QD (20 MILLIGRAM DAILY; 1-0-1, LONG-TERM THERAPY)
     Route: 048
     Dates: start: 2014
  3. MAGNESIUM [Concomitant]
     Active Substance: MAGNESIUM
     Dosage: 500 MILLIGRAM, QD(500 MILLIGRAM DAILY; 0-0-1, LONG-TERM THERAPY)
     Route: 048
     Dates: start: 2008
  4. VALSACOR [Suspect]
     Active Substance: VALSARTAN
     Indication: HYPERTENSION
     Dosage: 40 MILLIGRAM, QD(40 MILLIGRAM DAILY; 1-0-0)
     Route: 048
     Dates: start: 20180711, end: 20180808
  5. VALSARTAN. [Suspect]
     Active Substance: VALSARTAN
     Indication: HYPERTENSION
     Dosage: 40 MILLIGRAM, QD (40 MILLIGRAM DAILY; DAILY DOSE: 40MG TAKEN AS HALF OF A TABLET)
     Route: 048
     Dates: start: 20160701, end: 20160728
  6. GABAPENTIN. [Concomitant]
     Active Substance: GABAPENTIN
     Dosage: 1500 MILLIGRAM, QD (1500 MILLIGRAM DAILY; 1-1-1, LONG-TERM THERAPY)
     Route: 048
     Dates: start: 2008
  7. OPIPRAMOL [Concomitant]
     Active Substance: OPIPRAMOL
     Dosage: 50 MILLIGRAM, QD(50 MILLIGRAM DAILY; 0-0-1, LONG-TERM THERAPY )
     Route: 048
     Dates: start: 2008
  8. CALCIUM + D3                       /09279801/ [Concomitant]
     Dosage: 750 MILLIGRAM, QD (750 MILLIGRAM DAILY; 0-1-0, LONG-TERM THERAPY )
     Route: 048
     Dates: start: 2008
  9. FOLIC ACID. [Concomitant]
     Active Substance: FOLIC ACID
     Dosage: 600 MICROGRAM, QD (600 MICROGRAM DAILY; 1-0-0, LONG-TERM THERAPY)
     Route: 048
     Dates: start: 2008
  10. VESIKUR [Concomitant]
     Active Substance: SOLIFENACIN SUCCINATE
     Dosage: 10 MILLIGRAM, QD (10 MILLIGRAM DAILY; 1-0-1, LONG-TERM THERAPY)
     Route: 048
     Dates: start: 2010
  11. VALSARTAN. [Suspect]
     Active Substance: VALSARTAN
     Dosage: 80 MILLIGRAM, QD (80 MILLIGRAM DAILY;)
     Route: 048
     Dates: start: 20160729, end: 20180710
  12. AVONEX [Concomitant]
     Active Substance: INTERFERON BETA-1A
     Dosage: 30 MICROGRAM, QW(0-1-0, LONG-TERM THERAPY)
     Dates: start: 2008

REACTIONS (3)
  - Adenocarcinoma of colon [Unknown]
  - Product impurity [Recovered/Resolved]
  - Gastrointestinal carcinoma [Unknown]

NARRATIVE: CASE EVENT DATE: 201607
